FAERS Safety Report 11394009 (Version 1)
Quarter: 2015Q3

REPORT INFORMATION
  Report Type: Spontaneous
  Country: US (occurrence: None)
  Receive Date: 20150817
  Receipt Date: 20150817
  Transmission Date: 20151125
  Serious: Yes (Hospitalization)
  Sender: FDA-Public Use
  Company Number: None

PATIENT
  Age: 68 Year
  Sex: Male
  Weight: 70.76 kg

DRUGS (20)
  1. VALCYTE [Concomitant]
     Active Substance: VALGANCICLOVIR HYDROCHLORIDE
  2. ARGOCALCIFEROL [Concomitant]
  3. HARVONI [Suspect]
     Active Substance: LEDIPASVIR\SOFOSBUVIR
     Indication: HEPATITIS C
     Dosage: 90/400 MG
     Route: 048
     Dates: start: 20150319, end: 20150610
  4. MAG-OX [Concomitant]
     Active Substance: MAGNESIUM OXIDE
  5. PREDNISONE. [Concomitant]
     Active Substance: PREDNISONE
  6. POTASSIUM [Concomitant]
     Active Substance: POTASSIUM
  7. URSODIOL. [Concomitant]
     Active Substance: URSODIOL
  8. ASPIRIN. [Concomitant]
     Active Substance: ASPIRIN
  9. PANTOPRAZOLE [Concomitant]
     Active Substance: PANTOPRAZOLE SODIUM
  10. SPIRONOLACTONE. [Concomitant]
     Active Substance: SPIRONOLACTONE
  11. TACROLIMUS. [Concomitant]
     Active Substance: TACROLIMUS
  12. ROCALTROL [Concomitant]
     Active Substance: CALCITRIOL
  13. SILVER SULFATE [Concomitant]
  14. INSULIN GLARGINE [Concomitant]
     Active Substance: INSULIN GLARGINE
  15. LANTUS [Concomitant]
     Active Substance: INSULIN GLARGINE
  16. FLUDROCORTISON [Concomitant]
     Active Substance: FLUDROCORTISONE
  17. OXYCODONE [Concomitant]
     Active Substance: OXYCODONE
  18. NOVOLOG [Concomitant]
     Active Substance: INSULIN ASPART
  19. TESTOSTERONE. [Concomitant]
     Active Substance: TESTOSTERONE
  20. CEPHALEXIN. [Concomitant]
     Active Substance: CEPHALEXIN

REACTIONS (2)
  - Arthralgia [None]
  - Femoral neck fracture [None]

NARRATIVE: CASE EVENT DATE: 20150422
